FAERS Safety Report 9239461 (Version 2)
Quarter: 2013Q3

REPORT INFORMATION
  Report Type: Spontaneous
  Country: US (occurrence: US)
  Receive Date: 20130418
  Receipt Date: 20130725
  Transmission Date: 20140515
  Serious: Yes (Hospitalization, Other)
  Sender: FDA-Public Use
  Company Number: US-BAXTER-2013BAX014068

PATIENT
  Age: 41 Year
  Sex: Female

DRUGS (2)
  1. DIANEAL LOW CALCIUM [Suspect]
     Indication: PERITONEAL DIALYSIS
     Route: 033
     Dates: end: 20130423
  2. DIANEAL LOW CALCIUM [Suspect]
     Indication: PERITONEAL DIALYSIS
     Route: 033
     Dates: start: 201301, end: 20130423

REACTIONS (4)
  - Cellulitis [Recovering/Resolving]
  - Panniculitis [Recovering/Resolving]
  - Abdominal abscess [Not Recovered/Not Resolved]
  - Device related infection [Unknown]
